FAERS Safety Report 4918847-1 (Version None)
Quarter: 2006Q1

REPORT INFORMATION
  Report Type: 
  Country: None (occurrence: None)
  Receive Date: 20060222
  Receipt Date: 20051004
  Transmission Date: 20060701
  Serious: Yes (Death, Hospitalization)
  Sender: FDA-Public Use
  Company Number: US-MERCK-0510USA03979

PATIENT
  Age: 86 Year
  Sex: Female
  Weight: 55 kg

DRUGS (27)
  1. VIOXX [Suspect]
     Indication: ARTHRITIS
     Route: 048
     Dates: start: 20020805, end: 20030913
  2. ACETAMINOPHEN [Concomitant]
     Route: 065
  3. ALPHAGAN [Concomitant]
     Route: 065
  4. ATENOLOL [Concomitant]
     Route: 065
  5. CLARITIN [Concomitant]
     Route: 065
  6. CLONIDINE [Concomitant]
     Route: 065
  7. COZAAR [Concomitant]
     Route: 065
  8. DIGITEK [Concomitant]
     Route: 065
  9. DIPHENHYDRAMINE HYDROCHLORIDE [Concomitant]
     Route: 065
  10. DOCUSATE CALCIUM [Concomitant]
     Route: 065
  11. ENALAPRIL MALEATE [Concomitant]
     Route: 065
  12. FUROSEMIDE [Concomitant]
     Route: 065
  13. ACETAMINOPHEN AND HYDROCODONE BITARTRATE [Concomitant]
     Route: 065
  14. POTASSIUM CHLORIDE [Concomitant]
     Route: 065
  15. LEVAQUIN [Concomitant]
     Route: 065
  16. LEVOXYL [Concomitant]
     Route: 065
  17. LOMOTIL [Concomitant]
     Route: 065
  18. MAGNESIUM (UNSPECIFIED) [Concomitant]
     Route: 065
  19. [THERAPY UNSPECIFIED] [Concomitant]
     Route: 065
  20. NITROQUICK [Concomitant]
     Route: 065
  21. NORVASC [Concomitant]
     Route: 065
  22. OXYGEN [Concomitant]
     Route: 065
  23. CALCIUM (UNSPECIFIED) [Concomitant]
     Route: 065
  24. PAXIL [Concomitant]
     Route: 065
  25. PROTONIX [Concomitant]
     Route: 065
  26. REMERON [Concomitant]
     Route: 065
  27. XANAX [Concomitant]
     Route: 065

REACTIONS (16)
  - ANAEMIA [None]
  - ASTHENIA [None]
  - CARDIAC FAILURE CONGESTIVE [None]
  - CERUMEN IMPACTION [None]
  - CORONARY ARTERY DISEASE [None]
  - DEHYDRATION [None]
  - DIARRHOEA [None]
  - HYPOCALCAEMIA [None]
  - HYPOMAGNESAEMIA [None]
  - HYPOTENSION [None]
  - RENAL FAILURE CHRONIC [None]
  - RESPIRATORY FAILURE [None]
  - UPPER RESPIRATORY TRACT INFECTION [None]
  - URINARY TRACT INFECTION [None]
  - VENOUS INSUFFICIENCY [None]
  - VOMITING [None]
